FAERS Safety Report 12847766 (Version 1)
Quarter: 2016Q4

REPORT INFORMATION
  Report Type: Spontaneous
  Country: US (occurrence: US)
  Receive Date: 20161014
  Receipt Date: 20161014
  Transmission Date: 20170207
  Serious: No
  Sender: FDA-Public Use
  Company Number: US-JNJFOC-20160914311

PATIENT
  Age: 47 Year
  Sex: Male
  Weight: 118.84 kg

DRUGS (1)
  1. CHILDRENS TYLENOL [Suspect]
     Active Substance: ACETAMINOPHEN
     Indication: PAIN
     Dosage: 2 FULL CUPS WITH THE DOSING CUP AS NEEDED
     Route: 048

REACTIONS (5)
  - Liquid product physical issue [Unknown]
  - Product taste abnormal [Unknown]
  - Drug administered to patient of inappropriate age [Unknown]
  - Intentional product misuse [Unknown]
  - Product odour abnormal [Unknown]
